FAERS Safety Report 22954624 (Version 5)
Quarter: 2024Q2

REPORT INFORMATION
  Report Type: Spontaneous
  Country: DE (occurrence: DE)
  Receive Date: 20230918
  Receipt Date: 20240531
  Transmission Date: 20240715
  Serious: Yes (Other)
  Sender: FDA-Public Use
  Company Number: DE-JNJFOC-20230859947

PATIENT
  Age: 8 Decade

DRUGS (47)
  1. BORTEZOMIB [Suspect]
     Active Substance: BORTEZOMIB
     Indication: Plasma cell myeloma
     Dosage: 1.3 MILLIGRAM/SQ. METER
     Route: 065
     Dates: start: 20230516
  2. BORTEZOMIB [Suspect]
     Active Substance: BORTEZOMIB
     Dosage: 1.3 MILLIGRAM/SQ. METER
     Route: 065
     Dates: start: 20230612
  3. BORTEZOMIB [Suspect]
     Active Substance: BORTEZOMIB
     Dosage: 1.3 MILLIGRAM/SQ. METER,  BRIDGING THERAPY
     Route: 065
     Dates: start: 20230704
  4. BORTEZOMIB [Suspect]
     Active Substance: BORTEZOMIB
     Dosage: 1.3 MILLIGRAM/SQ. METER,  BRIDGING THERAPY
     Route: 065
     Dates: start: 20230517
  5. BORTEZOMIB [Suspect]
     Active Substance: BORTEZOMIB
     Dosage: 1.3 MILLIGRAM/SQ. METER,  BRIDGING THERAPY
     Route: 065
     Dates: start: 20230520
  6. BORTEZOMIB [Suspect]
     Active Substance: BORTEZOMIB
     Dosage: 1.3 MILLIGRAM/SQ. METER,  BRIDGING THERAPY
     Route: 065
     Dates: start: 20230613
  7. DEXAMETHASONE [Suspect]
     Active Substance: DEXAMETHASONE
     Indication: Plasma cell myeloma
     Dosage: 20 MG, D0, SECOND CYCLE, PROTCOL POMPAD
     Route: 065
     Dates: start: 20230612
  8. DEXAMETHASONE [Suspect]
     Active Substance: DEXAMETHASONE
     Dosage: 20 MG, D0, THIRD CYCLE, PROTCOL POM-PAD
     Route: 065
     Dates: start: 20230704
  9. DEXAMETHASONE [Suspect]
     Active Substance: DEXAMETHASONE
     Dosage: 20 MG, D0, BRIDGING THERAPY
     Route: 065
     Dates: start: 20230516
  10. DEXAMETHASONE [Suspect]
     Active Substance: DEXAMETHASONE
     Dosage: 20 MG (D1, BRIDGING 2ND CYCLE, PROTOCOL)
     Route: 065
     Dates: start: 20230613
  11. DEXAMETHASONE [Suspect]
     Active Substance: DEXAMETHASONE
     Dosage: 20 MG, D1, BRIDGING THERAPY
     Route: 065
     Dates: start: 20230517
  12. DEXAMETHASONE [Suspect]
     Active Substance: DEXAMETHASONE
     Dosage: 20 MG, D2, BRIDGING THERAPY
     Route: 065
     Dates: start: 20230518
  13. DEXAMETHASONE [Suspect]
     Active Substance: DEXAMETHASONE
     Dosage: 20 MG, D2, THIRD CYCLE, PROTOCOL POMPAD
     Route: 065
     Dates: start: 20230706
  14. DEXAMETHASONE [Suspect]
     Active Substance: DEXAMETHASONE
     Dosage: 20 MG, D2, BRIDGING THERAPY,
     Route: 065
     Dates: start: 20230614
  15. DEXAMETHASONE [Suspect]
     Active Substance: DEXAMETHASONE
     Dosage: 20 MG, D4, BRIDGING THERAPY
     Route: 065
     Dates: start: 20230520
  16. DEXAMETHASONE [Suspect]
     Active Substance: DEXAMETHASONE
     Dosage: 20 MG, D5, BRIDGING THERAPY
     Route: 065
     Dates: start: 20230521
  17. DEXAMETHASONE [Suspect]
     Active Substance: DEXAMETHASONE
     Dosage: 20 MG, D1, BRIDGING THERAPY, THIRD CYCLE, AS A PART OF SHORTENED PROTOCOL POM-PAD-DARA
     Route: 065
     Dates: start: 20230705
  18. DOXORUBICIN [Suspect]
     Active Substance: DOXORUBICIN
     Indication: Plasma cell myeloma
     Dosage: 9 MILLIGRAM/SQ. METER
     Route: 065
     Dates: start: 20230516
  19. DOXORUBICIN [Suspect]
     Active Substance: DOXORUBICIN
     Dosage: 9 MILLIGRAM/SQ. METER
     Route: 065
     Dates: start: 20230612
  20. DOXORUBICIN [Suspect]
     Active Substance: DOXORUBICIN
     Dosage: 9 MILLIGRAM/SQ. METER
     Route: 065
     Dates: start: 20230704
  21. DOXORUBICIN [Suspect]
     Active Substance: DOXORUBICIN
     Dosage: 6 MILLIGRAM/SQ. METER
     Route: 065
     Dates: start: 20230804
  22. DOXORUBICIN [Suspect]
     Active Substance: DOXORUBICIN
     Dosage: 9 MG/M2, D3, THIRD CYCLE, PROTCOL POMPA
     Route: 065
     Dates: start: 20230707
  23. DOXORUBICIN [Suspect]
     Active Substance: DOXORUBICIN
     Dosage: 9 MG/M2, D1, SECOND CYCLE, PROTCOL POM-
     Route: 065
     Dates: start: 20230613
  24. DOXORUBICIN [Suspect]
     Active Substance: DOXORUBICIN
     Dosage: 9 MG/M2, D2, SECONDCYCLE PROTCOL POMPAD
     Route: 065
     Dates: start: 20230614
  25. DOXORUBICIN [Suspect]
     Active Substance: DOXORUBICIN
     Dosage: 9 MG/M2, D1-4, FOURTH CYCLE, PROTOCL
     Route: 065
     Dates: start: 20230805, end: 20230808
  26. DOXORUBICIN [Suspect]
     Active Substance: DOXORUBICIN
     Dosage: 9 MG/M2, D1-4, BRIDGING THERAPY
     Route: 065
     Dates: start: 20230517, end: 20230520
  27. DOXORUBICIN [Suspect]
     Active Substance: DOXORUBICIN
     Dosage: 9 MG/M2, D3, SECOND CYCLE, PROTCOL POM
     Route: 065
     Dates: start: 20230615
  28. DOXORUBICIN [Suspect]
     Active Substance: DOXORUBICIN
     Dosage: 9 MG/M2, D1, THIRD CYCLE, AS A PART OF
     Route: 065
     Dates: start: 20230705
  29. DOXORUBICIN [Suspect]
     Active Substance: DOXORUBICIN
     Dosage: 9 MG/M2, D2, THIRD CYCLE PROTCOL POM
     Route: 048
     Dates: start: 20230706
  30. DARZALEX [Suspect]
     Active Substance: DARATUMUMAB
     Indication: Plasma cell myeloma
     Dosage: 16 MG/M2, D0, BRIDGING THERAPY
     Route: 065
     Dates: start: 20230516
  31. DARZALEX [Suspect]
     Active Substance: DARATUMUMAB
     Dosage: 16 MG/SQ.MTR D0,THIRD CYCLE,PROTOCOL POM
     Route: 065
     Dates: start: 20230704
  32. DARZALEX [Suspect]
     Active Substance: DARATUMUMAB
     Dosage: 16 MG/M2, D0, SECOND CYCLEPROTCOL POM-PAD
     Route: 065
     Dates: start: 20230612
  33. DARZALEX [Suspect]
     Active Substance: DARATUMUMAB
     Dosage: 16 MG/M2, D3, SECOND CYCLE, PROTOCOLPOM
     Route: 065
     Dates: start: 20230615
  34. DARZALEX [Suspect]
     Active Substance: DARATUMUMAB
     Dosage: 16 MG/M2, D5, BRIDGING THERAPY
     Route: 065
     Dates: start: 20230521
  35. DARZALEX [Suspect]
     Active Substance: DARATUMUMAB
     Dosage: 16 MG/M2,D3,THIRD CYCLE, PROTCOL POMPAD
     Route: 065
     Dates: start: 20230707
  36. POMALIDOMIDE [Suspect]
     Active Substance: POMALIDOMIDE
     Indication: Plasma cell myeloma
     Dosage: 4 MG, D1-3, BRIDGING THERAPY, SECOND CYCLE, AS A PART OF SHORTENED PROTOCOL POM-PAD-DARA
     Dates: start: 20230512, end: 20230615
  37. POMALIDOMIDE [Suspect]
     Active Substance: POMALIDOMIDE
     Dosage: 4 MG, D1-14, BRIDGING THERAPY
     Dates: start: 20230516, end: 20230530
  38. POMALIDOMIDE [Suspect]
     Active Substance: POMALIDOMIDE
     Dosage: 2 MG, D1-3, BRIDGING THERAPY, THIRD CYCLE, AS A PART OF SHORTENED PROTOCOL POM-PAD-DARA
     Dates: start: 20230704, end: 20230707
  39. POMALIDOMIDE [Suspect]
     Active Substance: POMALIDOMIDE
     Dosage: 4 MG, D1-3, SECOND CYCLE, PROTCOL POM-
     Route: 065
     Dates: start: 20230513, end: 20230615
  40. POMALIDOMIDE [Suspect]
     Active Substance: POMALIDOMIDE
     Dosage: 2 MG, D1-3, THIRD CYCLE, PROTCOL POM
     Route: 065
     Dates: start: 20230705, end: 20230707
  41. POMALIDOMIDE [Suspect]
     Active Substance: POMALIDOMIDE
     Dosage: 4 MG, D1-14, BRIDGING THERAPY
     Route: 065
     Dates: start: 20230517, end: 20230530
  42. DARATUMUMAB [Suspect]
     Active Substance: DARATUMUMAB
     Indication: Plasma cell myeloma
     Dosage: 16 MG/M2, D0, BRIDGING THERAPY, THIRD CYCLE, AS A PART OF SHORTENED PROTOCOL POM-PAD-DARA
     Route: 065
     Dates: start: 20230704
  43. DARATUMUMAB [Suspect]
     Active Substance: DARATUMUMAB
     Dosage: 16 MG/M2, D0, BRIDGING THERAPY, SECOND CYCLE, AS A PART OF SHORTENED PROTOCOL POM-PAD-DARA
     Route: 065
     Dates: start: 20230612
  44. DARATUMUMAB [Suspect]
     Active Substance: DARATUMUMAB
     Dosage: 16 MG/M2, D0, BRIDGING THERAPY
     Route: 065
     Dates: start: 20230516
  45. DARATUMUMAB [Suspect]
     Active Substance: DARATUMUMAB
     Dosage: 16 MG/M2, D3, BRIDGING THERAPY, SECOND CYCLE, AS A PART OF SHORTENED PROTOCOL POM-PAD-DARA
     Route: 065
     Dates: start: 20230615
  46. DARATUMUMAB [Suspect]
     Active Substance: DARATUMUMAB
     Dosage: 16 MG/M2, D3, BRIDGING THERAPY, SECOND CYCLE, AS A PART OF SHORTENED PROTOCOL POM-PAD-DARA
     Route: 065
     Dates: start: 20230707
  47. DARATUMUMAB [Suspect]
     Active Substance: DARATUMUMAB
     Dosage: 16 MG/M2, D5, BRIDGING THERAPY
     Route: 065
     Dates: start: 20230521

REACTIONS (2)
  - Plasma cell myeloma [Unknown]
  - Intentional product use issue [Unknown]

NARRATIVE: CASE EVENT DATE: 20230101
